FAERS Safety Report 17246368 (Version 4)
Quarter: 2020Q2

REPORT INFORMATION
  Report Type: Report from Study
  Country: CN (occurrence: CN)
  Receive Date: 20200108
  Receipt Date: 20200622
  Transmission Date: 20200713
  Serious: Yes (Death, Hospitalization)
  Sender: FDA-Public Use
  Company Number: CN-ROCHE-2514553

PATIENT
  Age: 65 Year
  Sex: Female
  Weight: 59 kg

DRUGS (17)
  1. POTASSIUM CHLORIDE. [Concomitant]
     Active Substance: POTASSIUM CHLORIDE
     Dosage: AMINO ACID, FLUID REPLACEMENT, THE SPECIFIC DOSAGE IS UNKNOWN;
     Route: 065
     Dates: start: 20191220, end: 20200111
  2. VITAMIN B6 [Concomitant]
     Active Substance: PYRIDOXINE HYDROCHLORIDE
     Dosage: ANTIEMETIC, SPECIFIC USAGE AND DOSAGE IS UNKNOWN;
     Route: 065
     Dates: start: 20191220, end: 20200111
  3. LANSOPRAZOLE. [Concomitant]
     Active Substance: LANSOPRAZOLE
     Dosage: INHIBITS GASTRIC ACID, SPECIFIC USAGE AND DOSAGE ARE UNKNOWN;
     Route: 065
     Dates: start: 20191220, end: 20200111
  4. METOCLOPRAMIDE. [Concomitant]
     Active Substance: METOCLOPRAMIDE
     Dosage: ANTIEMETIC, SPECIFIC USAGE AND DOSAGE IS UNKNOWN
     Route: 065
     Dates: start: 20191220, end: 20200111
  5. ATEZOLIZUMAB. [Suspect]
     Active Substance: ATEZOLIZUMAB
     Indication: NON-SMALL CELL LUNG CANCER
     Dosage: ON 31/OCT/2019, PATIENT RECEIVED MOST RECENT DOSE OF ATEZOLIZUMAB
     Route: 041
     Dates: start: 20190109
  6. CISPLATIN. [Suspect]
     Active Substance: CISPLATIN
     Indication: NON-SMALL CELL LUNG CANCER
     Route: 042
     Dates: start: 20180918
  7. SULPIRIDE [Concomitant]
     Active Substance: SULPIRIDE
     Dosage: ANTIEMETIC, SPECIFIC USAGE AND DOSAGE IS UNKNOWN;
     Route: 065
     Dates: start: 20191220, end: 20200111
  8. MOSAPRIDE [Concomitant]
     Active Substance: MOSAPRIDE
     Dosage: DIGESTIVE ENZYMES
     Route: 065
     Dates: start: 20191220
  9. LACTOBACILLUS ACIDOPHILUS COMPOUND [Concomitant]
     Active Substance: LACTOBACILLUS ACIDOPHILUS
     Dosage: REGULATING GASTROINTESTINAL MOTILITY AND REGULATING INTESTINAL FLORA
     Route: 048
     Dates: start: 20191220
  10. LEUCOGEN [Concomitant]
     Active Substance: LEUCOGEN
     Route: 065
     Dates: start: 20191220, end: 20200111
  11. GEMCITABINE. [Suspect]
     Active Substance: GEMCITABINE
     Indication: NON-SMALL CELL LUNG CANCER
     Route: 042
     Dates: start: 20180918
  12. AMBROXOL [Concomitant]
     Active Substance: AMBROXOL
     Indication: PRODUCTIVE COUGH
     Dosage: THE SPECIFIC USAGE AND DOSAGE IS UNKNOWN
     Route: 065
     Dates: start: 20191220, end: 20200111
  13. LEVOFLOXACIN. [Concomitant]
     Active Substance: LEVOFLOXACIN
     Dosage: ANTI-INFECTION, SPECIFIC USAGE AND DOSAGE IS UNKNOWN
     Route: 065
     Dates: start: 20191220, end: 20200111
  14. CARBOCISTEINE [Concomitant]
     Active Substance: CARBOCYSTEINE
     Indication: PRODUCTIVE COUGH
     Dosage: ORAL SOLUTION, PHLEGM, ORAL, THREE TIMES A DAY, ONE AT A TIME
     Route: 065
     Dates: start: 20200111
  15. ESOMEPRAZOLE MAGNESIUM. [Concomitant]
     Active Substance: ESOMEPRAZOLE MAGNESIUM
     Route: 065
     Dates: start: 20191212
  16. IRON SUCROSE [Concomitant]
     Active Substance: IRON SUCROSE
     Dosage: IRON SUPPLEMENT, SPECIFIC USAGE AND DOSAGE ARE UNKNOWN;
     Route: 065
     Dates: start: 20191220, end: 20200111
  17. ILAPRAZOLE [Concomitant]
     Active Substance: ILAPRAZOLE
     Dosage: STOMACH PROTECTION
     Route: 048
     Dates: start: 20200111

REACTIONS (1)
  - Gastritis [Recovered/Resolved]

NARRATIVE: CASE EVENT DATE: 20191220
